FAERS Safety Report 8804281 (Version 2)
Quarter: 2014Q2

REPORT INFORMATION
  Report Type: Spontaneous
  Country: US (occurrence: US)
  Receive Date: 20120924
  Receipt Date: 20131024
  Transmission Date: 20141212
  Serious: No
  Sender: FDA-Public Use
  Company Number: US-PFIZER INC-2012232064

PATIENT
  Age: 23 Year
  Sex: Male
  Weight: 113 kg

DRUGS (1)
  1. VANCOMYCIN HCL [Suspect]
     Indication: SOFT TISSUE INFECTION
     Dosage: 1.5 G, TWICE DAILY (EVERY 12 HOURS)
     Dates: start: 201207, end: 201207

REACTIONS (1)
  - Antibiotic level above therapeutic [Recovered/Resolved]
